FAERS Safety Report 22743320 (Version 4)
Quarter: 2023Q4

REPORT INFORMATION
  Report Type: Spontaneous
  Country: CH (occurrence: CH)
  Receive Date: 20230724
  Receipt Date: 20231109
  Transmission Date: 20240110
  Serious: Yes (Other)
  Sender: FDA-Public Use
  Company Number: CH-MYLANLABS-2023M1077001

PATIENT
  Sex: Female

DRUGS (2)
  1. REVATIO [Suspect]
     Active Substance: SILDENAFIL CITRATE
     Indication: Systemic scleroderma
     Dosage: 20 MILLIGRAM, TID (20MG 3X/D)
     Route: 065
     Dates: start: 202011
  2. REVATIO [Suspect]
     Active Substance: SILDENAFIL CITRATE
     Indication: Rheumatoid arthritis

REACTIONS (3)
  - Anaemia [Unknown]
  - Off label use [Unknown]
  - Symptom recurrence [Unknown]

NARRATIVE: CASE EVENT DATE: 20201101
